FAERS Safety Report 19135221 (Version 2)
Quarter: 2021Q2

REPORT INFORMATION
  Report Type: Spontaneous
  Country: FR (occurrence: FR)
  Receive Date: 20210414
  Receipt Date: 20210426
  Transmission Date: 20210717
  Serious: Yes (Death)
  Sender: FDA-Public Use
  Company Number: FR-ANIPHARMA-2021-FR-000083

PATIENT
  Age: 89 Year
  Sex: Female

DRUGS (4)
  1. CANDESARTAN CILEXETIL. [Suspect]
     Active Substance: CANDESARTAN CILEXETIL
     Indication: PRODUCT USED FOR UNKNOWN INDICATION
     Dosage: UNSPECIFIED DOSE AND UNKNOWN FREQUENCY
     Route: 048
     Dates: end: 20210319
  2. PREVISCAN (FLUINDIONE) [Suspect]
     Active Substance: FLUINDIONE
     Dosage: UNSPECIFIED DOSE AND UNKNOWN FREQUENCY
     Route: 048
     Dates: end: 20210319
  3. HYDROCHLOROTHIAZIDE. [Suspect]
     Active Substance: HYDROCHLOROTHIAZIDE
     Dosage: UNSPECIFIED DOSE AND UNKNOWN FREQUENCY
     Route: 048
     Dates: end: 20210319
  4. COMIRNATY [Suspect]
     Active Substance: TOZINAMERAN
     Dosage: 1 DF ONCE
     Route: 030
     Dates: start: 20210317, end: 20210317

REACTIONS (3)
  - International normalised ratio increased [Fatal]
  - Haemorrhagic stroke [Fatal]
  - Hypertension [Fatal]

NARRATIVE: CASE EVENT DATE: 20210319
